FAERS Safety Report 6786903-1 (Version None)
Quarter: 2010Q2

REPORT INFORMATION
  Report Type: 
  Country: None (occurrence: None)
  Receive Date: 20100623
  Receipt Date: 20100611
  Transmission Date: 20101027
  Serious: Yes (Hospitalization)
  Sender: FDA-Public Use
  Company Number: JP-ABBOTT-10P-087-0652439-00

PATIENT
  Age: 83 Year
  Sex: Male

DRUGS (16)
  1. LEUPROLIDE ACETATE [Suspect]
     Indication: PROSTATE CANCER STAGE III
     Route: 058
     Dates: start: 20060215
  2. LEUPLIN FOR INJECTION KIT 3.75 MG [Suspect]
     Indication: PROSTATE CANCER STAGE III
     Route: 058
     Dates: start: 20050720, end: 20060118
  3. BICALUTAMIDE [Concomitant]
     Indication: PROSTATE CANCER STAGE III
     Route: 048
  4. NAUZELIN [Concomitant]
     Indication: LARGE INTESTINE CARCINOMA
     Route: 048
     Dates: start: 20060927, end: 20060927
  5. NAUZELIN [Concomitant]
     Indication: PREMEDICATION
  6. NAUZELIN [Concomitant]
     Indication: SURGERY
  7. LAXOBERON [Concomitant]
     Indication: LARGE INTESTINE CARCINOMA
     Route: 048
     Dates: start: 20060927, end: 20060927
  8. LAXOBERON [Concomitant]
     Indication: PREMEDICATION
  9. LAXOBERON [Concomitant]
     Indication: SURGERY
  10. NIFLEC [Concomitant]
     Indication: LARGE INTESTINE CARCINOMA
     Route: 048
     Dates: start: 20060927, end: 20060927
  11. NIFLEC [Concomitant]
     Indication: SURGERY
  12. NIFLEC [Concomitant]
     Indication: PREMEDICATION
  13. NEW LECICARBON [Concomitant]
     Indication: LARGE INTESTINE CARCINOMA
     Route: 054
     Dates: start: 20060927, end: 20060927
  14. NEW LECICARBON [Concomitant]
     Indication: PREMEDICATION
  15. NEW LECICARBON [Concomitant]
     Indication: SURGERY
  16. MAGNESIUM OXIDE [Concomitant]
     Indication: CONSTIPATION PROPHYLAXIS
     Route: 048
     Dates: start: 20061023, end: 20061122

REACTIONS (6)
  - BLOOD CREATININE DECREASED [None]
  - BLOOD LACTATE DEHYDROGENASE INCREASED [None]
  - COLON CANCER [None]
  - GAMMA-GLUTAMYLTRANSFERASE INCREASED [None]
  - PROTEIN TOTAL INCREASED [None]
  - WHITE BLOOD CELL COUNT INCREASED [None]
